FAERS Safety Report 9154308 (Version 2)
Quarter: 2013Q2

REPORT INFORMATION
  Report Type: Spontaneous
  Country: US (occurrence: US)
  Receive Date: 20130311
  Receipt Date: 20130404
  Transmission Date: 20140414
  Serious: Yes (Other)
  Sender: FDA-Public Use
  Company Number: US-PFIZER INC-2013079610

PATIENT
  Sex: Female

DRUGS (1)
  1. LYRICA [Suspect]
     Dosage: 75 MG, 2X/DAY

REACTIONS (16)
  - Impaired driving ability [Not Recovered/Not Resolved]
  - Somnolence [Not Recovered/Not Resolved]
  - Agitation [Unknown]
  - Feeling abnormal [Unknown]
  - Arthralgia [Unknown]
  - Musculoskeletal stiffness [Unknown]
  - Pain [Unknown]
  - Pain in extremity [Unknown]
  - Memory impairment [Unknown]
  - Abdominal pain upper [Unknown]
  - Muscle spasms [Unknown]
  - Dizziness [Unknown]
  - Restlessness [Not Recovered/Not Resolved]
  - Abdominal discomfort [Unknown]
  - Thinking abnormal [Unknown]
  - Back pain [Not Recovered/Not Resolved]
